FAERS Safety Report 8608109-3 (Version None)
Quarter: 2012Q3

REPORT INFORMATION
  Report Type: 
  Country: None (occurrence: None)
  Receive Date: 20120821
  Receipt Date: 20120810
  Transmission Date: 20120928
  Serious: Yes (Other)
  Sender: FDA-Public Use
  Company Number: US-ASTELLAS-2012US001819

PATIENT
  Sex: Female
  Weight: 57 kg

DRUGS (1)
  1. TACROLIMUS [Suspect]
     Indication: DERMATITIS ATOPIC
     Dosage: 0.03 %, WEEKLY
     Route: 061
     Dates: start: 20091210

REACTIONS (3)
  - BODY TINEA [None]
  - STAPHYLOCOCCAL INFECTION [None]
  - IMPETIGO [None]
